FAERS Safety Report 9807473 (Version 1)
Quarter: 2014Q1

REPORT INFORMATION
  Report Type: Spontaneous
  Country: US (occurrence: US)
  Receive Date: 20140110
  Receipt Date: 20140110
  Transmission Date: 20141002
  Serious: No
  Sender: FDA-Public Use
  Company Number: US-SANOFI-AVENTIS-2013SA076800

PATIENT
  Sex: Male

DRUGS (10)
  1. PLAVIX [Suspect]
     Dosage: TAKEN FROM:ABOUT A MONTH AGO
     Route: 065
  2. PROPAFENONE [Concomitant]
  3. BENICAR [Concomitant]
  4. ASPIRIN [Concomitant]
  5. AMLODIPINE [Concomitant]
  6. OMEGA-3 [Concomitant]
  7. ALL OTHER THERAPEUTIC PRODUCTS [Concomitant]
  8. TYLENOL [Concomitant]
  9. FLUOROURACIL [Concomitant]
  10. STOOL SOFTENER [Concomitant]

REACTIONS (1)
  - Heart rate irregular [Recovered/Resolved]
